FAERS Safety Report 14152298 (Version 1)
Quarter: 2017Q4

REPORT INFORMATION
  Report Type: Other
  Country: US (occurrence: US)
  Receive Date: 20171102
  Receipt Date: 20171102
  Transmission Date: 20180321
  Serious: Yes (Other)
  Sender: FDA-Public Use
  Company Number: US-ACORDA-ACO_143260_2017

PATIENT
  Age: 50 Year
  Sex: Female

DRUGS (1)
  1. ZANAFLEX [Suspect]
     Active Substance: TIZANIDINE HYDROCHLORIDE
     Indication: PRODUCT USED FOR UNKNOWN INDICATION
     Dosage: 4 MG 1-2 TABLETS, Q 6 HRS PRN
     Route: 048
     Dates: start: 20130408, end: 20161128

REACTIONS (2)
  - Dyspnoea [Unknown]
  - Respiratory depression [Unknown]

NARRATIVE: CASE EVENT DATE: 20171024
